FAERS Safety Report 6452692-3 (Version None)
Quarter: 2009Q4

REPORT INFORMATION
  Report Type: 
  Country: None (occurrence: None)
  Receive Date: 20091116
  Receipt Date: 20091106
  Transmission Date: 20100525
  Serious: Yes (Hospitalization)
  Sender: FDA-Public Use
  Company Number: ADR50392009

PATIENT
  Age: 73 Year
  Sex: Male

DRUGS (2)
  1. LEVETIRACETAM [Suspect]
     Indication: CONVULSION
     Dosage: 1G DAY
  2. CLOPIDOGREL [Concomitant]

REACTIONS (3)
  - CEREBRAL AMYLOID ANGIOPATHY [None]
  - CEREBRAL HAEMORRHAGE [None]
  - PLATELET DISORDER [None]
